FAERS Safety Report 4842631-0 (Version None)
Quarter: 2005Q4

REPORT INFORMATION
  Report Type: 
  Country: None (occurrence: None)
  Receive Date: 20051201
  Receipt Date: 20051128
  Transmission Date: 20060501
  Serious: Yes (Other)
  Sender: FDA-Public Use
  Company Number: NL-GLAXOSMITHKLINE-B0402148A

PATIENT
  Age: 40 Year
  Sex: Female

DRUGS (2)
  1. PAROXETINE HYDROCHLORIDE [Suspect]
     Indication: PHOBIA
     Dosage: 20MG PER DAY
     Route: 065
     Dates: start: 19980901, end: 19991101
  2. CITALOPRAM [Suspect]
     Route: 065

REACTIONS (1)
  - HYPOMANIA [None]
